FAERS Safety Report 4952949-9 (Version None)
Quarter: 2006Q1

REPORT INFORMATION
  Report Type: 
  Country: None (occurrence: None)
  Receive Date: 20060324
  Receipt Date: 20051202
  Transmission Date: 20060701
  Serious: Yes (Death, Other)
  Sender: FDA-Public Use
  Company Number: JP-BRISTOL-MYERS SQUIBB COMPANY-13210661

PATIENT
  Age: 53 Year
  Sex: Female

DRUGS (11)
  1. ENDOXAN [Suspect]
     Indication: BREAST CANCER RECURRENT
     Route: 042
     Dates: start: 19970409, end: 20051026
  2. FARMORUBICIN [Suspect]
     Indication: BREAST CANCER RECURRENT
     Route: 042
     Dates: start: 20050929, end: 20051026
  3. HYSRON [Concomitant]
  4. MS CONTIN [Concomitant]
  5. KYTRIL [Concomitant]
     Dates: start: 20051027
  6. DEXAMETHASONE TAB [Concomitant]
     Dates: start: 20051027
  7. AREDIA [Concomitant]
     Dates: start: 20051102
  8. ENALAPRIL MALEATE [Concomitant]
  9. MAGNESIUM OXIDE [Concomitant]
  10. ALOSENN [Concomitant]
  11. OXYCONTIN [Concomitant]
     Dates: start: 20050512

REACTIONS (18)
  - ABASIA [None]
  - ALOPECIA [None]
  - BACK PAIN [None]
  - CARDIAC ARREST [None]
  - CARDIAC FAILURE ACUTE [None]
  - CHEST DISCOMFORT [None]
  - CHEST PAIN [None]
  - COUGH [None]
  - LYMPHANGIOSIS CARCINOMATOSA [None]
  - MALAISE [None]
  - MALIGNANT NEOPLASM PROGRESSION [None]
  - METASTASES TO BONE [None]
  - NEUTROPENIA [None]
  - PATHOLOGICAL FRACTURE [None]
  - RESPIRATORY FAILURE [None]
  - THROMBOCYTOPENIA [None]
  - WEIGHT INCREASED [None]
  - WHITE BLOOD CELL COUNT DECREASED [None]
